FAERS Safety Report 25951940 (Version 1)
Quarter: 2025Q4

REPORT INFORMATION
  Report Type: Spontaneous
  Country: EU (occurrence: EU)
  Receive Date: 20251023
  Receipt Date: 20251023
  Transmission Date: 20260118
  Serious: Yes (Other)
  Sender: Haleon PLC
  Company Number: None

PATIENT
  Age: 69 Year
  Sex: Female

DRUGS (3)
  1. NICOTINELL [Suspect]
     Active Substance: NICOTINE
     Indication: Nicotine dependence
     Dosage: 10-12 TIMES A DAY
  2. NICOTINELL [Suspect]
     Active Substance: NICOTINE
     Indication: Ex-tobacco user
     Dosage: HALF OF THE MEDICATED CHEWING-GUM EACH TIME
     Route: 050
     Dates: start: 20210127
  3. NICOTINELL [Suspect]
     Active Substance: NICOTINE
     Indication: Nicotine dependence
     Dosage: FIRST ADMIN DATE: 2023-12?LAST ADMIN DATE: 2023-12

REACTIONS (10)
  - Angina pectoris [Unknown]
  - Throat irritation [Unknown]
  - Palpitations [Unknown]
  - Gastrointestinal disorder [Unknown]
  - Malaise [Recovering/Resolving]
  - Nausea [Unknown]
  - Blood glucose increased [Recovered/Resolved with Sequelae]
  - Pyrexia [Unknown]
  - Joint dislocation [Unknown]
  - Cough [Unknown]

NARRATIVE: CASE EVENT DATE: 20210127
